FAERS Safety Report 23487021 (Version 2)
Quarter: 2024Q1

REPORT INFORMATION
  Report Type: Spontaneous
  Country: GB (occurrence: US)
  Receive Date: 20240206
  Receipt Date: 20240326
  Transmission Date: 20240410
  Serious: Yes (Other)
  Sender: FDA-Public Use
  Company Number: GB-009507513-2402USA000578

PATIENT
  Sex: Female

DRUGS (4)
  1. KEYTRUDA [Suspect]
     Active Substance: PEMBROLIZUMAB
     Indication: Salivary gland cancer
     Dosage: UNK
     Route: 042
     Dates: start: 2021, end: 202308
  2. KEYTRUDA [Suspect]
     Active Substance: PEMBROLIZUMAB
     Dosage: UNK
     Route: 042
     Dates: start: 2023, end: 2023
  3. ALIMTA [Suspect]
     Active Substance: PEMETREXED DISODIUM
     Indication: Salivary gland cancer
     Dosage: UNK
     Dates: start: 2021, end: 202308
  4. ALIMTA [Suspect]
     Active Substance: PEMETREXED DISODIUM
     Dosage: UNK

REACTIONS (4)
  - Malignant neoplasm progression [Unknown]
  - Pulmonary oedema [Unknown]
  - Therapy cessation [Unknown]
  - Insurance issue [Unknown]

NARRATIVE: CASE EVENT DATE: 20230801
